FAERS Safety Report 10063263 (Version 1)
Quarter: 2014Q2

REPORT INFORMATION
  Report Type: Spontaneous
  Country: US (occurrence: US)
  Receive Date: 20140407
  Receipt Date: 20140407
  Transmission Date: 20141212
  Serious: Yes (Hospitalization, Other)
  Sender: FDA-Public Use
  Company Number: US-TEVA-473068USA

PATIENT
  Age: 27 Year
  Sex: Female

DRUGS (1)
  1. METRONIDAZOLE [Suspect]
     Indication: VAGINITIS BACTERIAL
     Route: 065

REACTIONS (1)
  - Acute psychosis [Recovered/Resolved]
